FAERS Safety Report 19418638 (Version 1)
Quarter: 2021Q2

REPORT INFORMATION
  Report Type: Spontaneous
  Country: CN (occurrence: CN)
  Receive Date: 20210615
  Receipt Date: 20210615
  Transmission Date: 20210717
  Serious: Yes (Hospitalization, Other)
  Sender: FDA-Public Use
  Company Number: CN-BAYER-2021-158115

PATIENT
  Age: 76 Year
  Sex: Female

DRUGS (5)
  1. METOPROLOL. [Concomitant]
     Active Substance: METOPROLOL
     Indication: HYPERTENSION
     Dosage: 25 MG, OM
     Route: 048
  2. AN BO NUO [Concomitant]
     Indication: HYPERTENSION
     Dosage: 1 DF, QD
     Route: 048
  3. TRIPRIZUMAB [Suspect]
     Active Substance: TORIPALIMAB
     Dosage: 240 MG, Q2WK
     Route: 042
     Dates: start: 20210519
  4. NEXAVAR [Suspect]
     Active Substance: SORAFENIB
     Indication: CHEMOTHERAPY
     Dosage: 0.4 G, BID
     Route: 048
     Dates: start: 20210519
  5. METOPROLOL. [Concomitant]
     Active Substance: METOPROLOL
     Indication: HYPERTENSION
     Dosage: 12.5 MG, HS
     Route: 048

REACTIONS (10)
  - Heart rate increased [None]
  - Pyrexia [Recovering/Resolving]
  - Face oedema [Recovering/Resolving]
  - Temperature intolerance [Recovered/Resolved]
  - Respiratory rate increased [None]
  - Drug eruption [Recovering/Resolving]
  - Blood sodium decreased [None]
  - Rash [Recovering/Resolving]
  - Blood potassium decreased [None]
  - Procalcitonin increased [None]

NARRATIVE: CASE EVENT DATE: 20210529
